FAERS Safety Report 5034539-5 (Version None)
Quarter: 2006Q2

REPORT INFORMATION
  Report Type: 
  Country: None (occurrence: None)
  Receive Date: 20060626
  Receipt Date: 20060619
  Transmission Date: 20061013
  Serious: Yes (Death)
  Sender: FDA-Public Use
  Company Number: IL-NOVOPROD-254287

PATIENT
  Age: 29 Year
  Sex: Male

DRUGS (2)
  1. NOVOSEVEN [Suspect]
     Indication: HAEMORRHAGE
     Dosage: 7.2 MG, SINGLE
     Dates: start: 20060614, end: 20060614
  2. RED BLOOD CELLS [Concomitant]

REACTIONS (3)
  - BURN DEBRIDEMENT [None]
  - CONCOMITANT DISEASE PROGRESSION [None]
  - SEPSIS [None]
